FAERS Safety Report 5741458-5 (Version None)
Quarter: 2008Q2

REPORT INFORMATION
  Report Type: 
  Country: None (occurrence: None)
  Receive Date: 20080519
  Receipt Date: 20070321
  Transmission Date: 20081010
  Serious: No
  Sender: FDA-Public Use
  Company Number: US-BAYER-US-2007-010624

PATIENT
  Age: 63 Year
  Sex: Male

DRUGS (1)
  1. ULTRAVIST 150 [Suspect]
     Indication: COMPUTERISED TOMOGRAM ABDOMEN
     Dosage: UNIT DOSE: 150 ML
     Route: 042
     Dates: start: 20070123, end: 20070123

REACTIONS (3)
  - HOT FLUSH [None]
  - LIP SWELLING [None]
  - WHEEZING [None]
